FAERS Safety Report 13061951 (Version 2)
Quarter: 2017Q1

REPORT INFORMATION
  Report Type: Spontaneous
  Country: FR (occurrence: FR)
  Receive Date: 20161226
  Receipt Date: 20170116
  Transmission Date: 20170428
  Serious: Yes (Hospitalization)
  Sender: FDA-Public Use
  Company Number: FR-009507513-1612FRA011823

PATIENT
  Age: 54 Year
  Sex: Male

DRUGS (9)
  1. SOLUPRED [Concomitant]
     Active Substance: PREDNISOLONE
     Dosage: 1.5 TABLET IN THE MORNING
     Route: 048
     Dates: start: 201601
  2. NEORAL [Concomitant]
     Active Substance: CYCLOSPORINE
     Dosage: 80 MG, TWICE DAILY
     Route: 048
     Dates: start: 201601
  3. BISOPROLOL [Concomitant]
     Active Substance: BISOPROLOL
     Dosage: 1 TABLET IN THE MORNING
     Dates: start: 201601
  4. CELLCEPT [Concomitant]
     Active Substance: MYCOPHENOLATE MOFETIL\MYCOPHENOLATE MOFETIL HYDROCHLORIDE
     Dosage: 3 TABLETS IN THE MORNING AND IN THE EVENING
     Route: 048
     Dates: start: 201601
  5. ROVALCYTE [Concomitant]
     Active Substance: VALGANCICLOVIR HYDROCHLORIDE
     Dosage: 2 TABLETS IN THE MORNING
     Route: 048
     Dates: start: 201601
  6. EZETROL [Suspect]
     Active Substance: EZETIMIBE
     Indication: DYSLIPIDAEMIA
     Dosage: 10 MG, 1 TABLET IN THE EVENING
     Route: 048
     Dates: start: 20160830, end: 20161206
  7. VASTEN [Suspect]
     Active Substance: PRAVASTATIN SODIUM
     Indication: DYSLIPIDAEMIA
     Dosage: 40 MG, 1 TABLET IN THE EVENING
     Route: 048
     Dates: start: 201601, end: 20161206
  8. KARDEGIC [Concomitant]
     Active Substance: ASPIRIN LYSINE
     Dosage: 1 SACHET IN THE EVENING
     Dates: start: 201601
  9. UVEDOSE [Concomitant]
     Active Substance: CHOLECALCIFEROL
     Dosage: 1 VIAL EVERY 3 MONTHS
     Dates: start: 201601

REACTIONS (6)
  - Cholestasis [Recovering/Resolving]
  - Blood bilirubin increased [Recovering/Resolving]
  - Blood alkaline phosphatase increased [Recovering/Resolving]
  - Alanine aminotransferase increased [Recovering/Resolving]
  - Hepatocellular injury [Recovering/Resolving]
  - Aspartate aminotransferase increased [Recovering/Resolving]

NARRATIVE: CASE EVENT DATE: 20161206
